FAERS Safety Report 11512431 (Version 1)
Quarter: 2015Q3

REPORT INFORMATION
  Report Type: Spontaneous
  Country: IT (occurrence: None)
  Receive Date: 20150914
  Receipt Date: 20150914
  Transmission Date: 20151125
  Serious: Yes (Hospitalization)
  Sender: FDA-Public Use
  Company Number: 2015PL000187

PATIENT
  Age: 38 Year
  Sex: Female

DRUGS (1)
  1. ALLOPURINOL (ALLOPURINOL) TABLET [Suspect]
     Active Substance: ALLOPURINOL
     Indication: HYPERURICAEMIA

REACTIONS (6)
  - Acute hepatic failure [None]
  - Diarrhoea [None]
  - Acute kidney injury [None]
  - Arthralgia [None]
  - Rash erythematous [None]
  - Drug reaction with eosinophilia and systemic symptoms [None]
